FAERS Safety Report 8952305 (Version 2)
Quarter: 2013Q2

REPORT INFORMATION
  Report Type: Spontaneous
  Country: US (occurrence: US)
  Receive Date: 20121205
  Receipt Date: 20130411
  Transmission Date: 20140414
  Serious: Yes (Other)
  Sender: FDA-Public Use
  Company Number: US-AMGEN-USASP2012076982

PATIENT
  Age: 63 Year
  Sex: Male

DRUGS (2)
  1. ARANESP [Suspect]
     Indication: PRODUCT USED FOR UNKNOWN INDICATION
     Dosage: 100 MUG, QWK
     Dates: end: 20120914
  2. ARANESP [Suspect]

REACTIONS (6)
  - Kidney transplant rejection [Unknown]
  - Haemoglobin decreased [Unknown]
  - Red blood cell sedimentation rate increased [Unknown]
  - C-reactive protein increased [Unknown]
  - Inflammation [Unknown]
  - Drug ineffective [Unknown]
